FAERS Safety Report 10663746 (Version 3)
Quarter: 2015Q1

REPORT INFORMATION
  Report Type: Report from Study
  Country: AR (occurrence: None)
  Receive Date: 20141217
  Receipt Date: 20150205
  Transmission Date: 20150720
  Serious: Yes (Death, Congenital Anomaly, Other)
  Sender: FDA-Public Use
  Company Number: AR2014GSK036110

PATIENT
  Age: 31 Year
  Sex: Male
  Weight: 2.8 kg

DRUGS (2)
  1. KALETRA [Suspect]
     Active Substance: LOPINAVIR\RITONAVIR
     Indication: HIV INFECTION
     Route: 064
     Dates: start: 20111130
  2. LAMIVUDINE AND ZIDOVUDINE [Suspect]
     Active Substance: LAMIVUDINE\ZIDOVUDINE
     Indication: HIV INFECTION
     Route: 064
     Dates: start: 20111130

REACTIONS (4)
  - Coarctation of the aorta [None]
  - Death neonatal [None]
  - Surgery [None]
  - Maternal drugs affecting foetus [None]

NARRATIVE: CASE EVENT DATE: 20111130
